FAERS Safety Report 4493058-5 (Version None)
Quarter: 2004Q4

REPORT INFORMATION
  Report Type: 
  Country: None (occurrence: None)
  Receive Date: 20041101
  Receipt Date: 20041018
  Transmission Date: 20050328
  Serious: Yes (Hospitalization)
  Sender: FDA-Public Use
  Company Number: 239908

PATIENT
  Age: 60 Year
  Sex: Male
  Weight: 73 kg

DRUGS (5)
  1. NORDITROPIN [Suspect]
     Indication: GROWTH HORMONE DEFICIENCY
  2. MINIRIN ^AVENTIS PHARMA^ (DESMOPRESSIN ACETATE) [Concomitant]
  3. HYDROCORTISONE [Concomitant]
  4. LEVOTHYROXINE SODIUM [Concomitant]
  5. PANTESON (TESTOSTERONE UNDECANOATE) [Concomitant]

REACTIONS (1)
  - GASTROENTERITIS [None]
